FAERS Safety Report 17440499 (Version 1)
Quarter: 2020Q1

REPORT INFORMATION
  Report Type: Spontaneous
  Country: US (occurrence: US)
  Receive Date: 20200220
  Receipt Date: 20200220
  Transmission Date: 20200409
  Serious: Yes (Other)
  Sender: FDA-Public Use
  Company Number: US-BRISTOL-MYERS SQUIBB COMPANY-BMS-2020-013753

PATIENT
  Age: 45 Year
  Sex: Female
  Weight: 86.6 kg

DRUGS (2)
  1. ASPIRIN [ACETYLSALICYLIC ACID] [Concomitant]
     Active Substance: ASPIRIN
     Indication: PRODUCT USED FOR UNKNOWN INDICATION
     Dosage: UNK
     Route: 065
  2. ELIQUIS [Suspect]
     Active Substance: APIXABAN
     Indication: THROMBOPHLEBITIS SUPERFICIAL
     Dosage: 5 MILLIGRAM, BID
     Route: 048
     Dates: start: 201910, end: 202001

REACTIONS (2)
  - Intentional product use issue [Unknown]
  - Deep vein thrombosis [Unknown]
